FAERS Safety Report 21405695 (Version 1)
Quarter: 2022Q4

REPORT INFORMATION
  Report Type: Report from Study
  Country: EG (occurrence: EG)
  Receive Date: 20221004
  Receipt Date: 20221004
  Transmission Date: 20230113
  Serious: Yes (Other)
  Sender: FDA-Public Use
  Company Number: EG-NOVARTISPH-NVSC2022EG222096

PATIENT
  Age: 41 Year
  Sex: Female

DRUGS (3)
  1. GILENYA [Suspect]
     Active Substance: FINGOLIMOD HYDROCHLORIDE
     Indication: Multiple sclerosis
     Dosage: 1 DOSAGE FORM, QD
     Route: 048
     Dates: start: 2021
  2. CALCIUM\VITAMIN D [Concomitant]
     Active Substance: CALCIUM\VITAMIN D
     Indication: Supplementation therapy
     Dosage: UNK, QD
     Route: 065
     Dates: start: 2012
  3. ANTODINE [Concomitant]
     Indication: Abdominal pain upper
     Dosage: 1 DOSAGE FORM, NOW AND THEN
     Route: 065
     Dates: start: 2012

REACTIONS (11)
  - Hypoglycaemia [Unknown]
  - Spinal pain [Recovered/Resolved]
  - Dizziness [Recovered/Resolved]
  - Fatigue [Recovered/Resolved]
  - Mental disorder [Recovering/Resolving]
  - Disturbance in attention [Recovering/Resolving]
  - Multiple sclerosis relapse [Not Recovered/Not Resolved]
  - Vision blurred [Not Recovered/Not Resolved]
  - Limb discomfort [Recovering/Resolving]
  - Hypoaesthesia [Recovering/Resolving]
  - Drug ineffective [Unknown]

NARRATIVE: CASE EVENT DATE: 20220501
